FAERS Safety Report 6232285-3 (Version None)
Quarter: 2009Q2

REPORT INFORMATION
  Report Type: 
  Country: None (occurrence: None)
  Receive Date: 20090617
  Receipt Date: 20090608
  Transmission Date: 20091009
  Serious: Yes (Hospitalization, Congenital Anomaly, Other)
  Sender: FDA-Public Use
  Company Number: US-PFIZER INC-2007095337

PATIENT
  Sex: Male

DRUGS (6)
  1. ZOLOFT [Suspect]
     Dosage: 50 MG, UNK
     Dates: start: 20040201
  2. TETRACYCLINE [Concomitant]
     Indication: ACNE
     Dosage: UNK
  3. DIFFERIN [Concomitant]
     Indication: ACNE
  4. ZITHROMAX [Concomitant]
     Indication: SINUSITIS
     Dosage: UNK
  5. VITAMIN TAB [Concomitant]
     Dosage: UNK
  6. FOLIC ACID [Concomitant]

REACTIONS (9)
  - ASTHENIA [None]
  - ATRIAL SEPTAL DEFECT [None]
  - DRUG EXPOSURE DURING PREGNANCY [None]
  - GASTROOESOPHAGEAL REFLUX DISEASE [None]
  - HEART VALVE INCOMPETENCE [None]
  - HYPONATRAEMIA [None]
  - RESPIRATORY DISTRESS [None]
  - TRANSPOSITION OF THE GREAT VESSELS [None]
  - VENTRICULAR SEPTAL DEFECT [None]
